FAERS Safety Report 7929453-9 (Version None)
Quarter: 2011Q4

REPORT INFORMATION
  Report Type: 
  Country: None (occurrence: None)
  Receive Date: 20111121
  Receipt Date: 20111115
  Transmission Date: 20120403
  Serious: Yes (Hospitalization, Other)
  Sender: FDA-Public Use
  Company Number: AU-BRISTOL-MYERS SQUIBB COMPANY-16168528

PATIENT
  Age: 72 Year
  Sex: Female
  Weight: 67 kg

DRUGS (14)
  1. SULFASALAZINE [Concomitant]
  2. SYMBICORT [Concomitant]
     Indication: ASTHMA
  3. ADALAT [Concomitant]
     Indication: BLOOD PRESSURE INCREASED
  4. PREDNISONE TAB [Concomitant]
     Indication: RHEUMATOID ARTHRITIS
  5. ATACAND HCT [Concomitant]
     Indication: ATRIAL FIBRILLATION
  6. ORENCIA [Suspect]
     Indication: RHEUMATOID ARTHRITIS
     Route: 042
     Dates: start: 20091001
  7. METHOTREXATE [Concomitant]
     Indication: RHEUMATOID ARTHRITIS
  8. LIPITOR [Concomitant]
     Indication: BLOOD CHOLESTEROL INCREASED
  9. ATENOLOL [Concomitant]
     Indication: BLOOD PRESSURE INCREASED
  10. ADALAT [Concomitant]
  11. FOLIC ACID [Concomitant]
  12. VENTOLIN [Concomitant]
     Indication: ASTHMA
  13. WARFARIN SODIUM [Concomitant]
     Indication: COAGULOPATHY
     Dosage: 1DF: 2/2.5MG, 22.5MG
  14. PREDNISONE TAB [Concomitant]
     Indication: ASTHMA

REACTIONS (7)
  - PRODUCTIVE COUGH [None]
  - PNEUMOTHORAX [None]
  - BRONCHIECTASIS [None]
  - RHEUMATOID ARTHRITIS [None]
  - DIARRHOEA [None]
  - ASTHMA [None]
  - VOMITING [None]
